FAERS Safety Report 6023655-7 (Version None)
Quarter: 2008Q4

REPORT INFORMATION
  Report Type: 
  Country: None (occurrence: None)
  Receive Date: 20081229
  Receipt Date: 20081229
  Transmission Date: 20090506
  Serious: Yes (Other)
  Sender: FDA-Public Use
  Company Number: None

PATIENT
  Age: 52 Year
  Sex: Female
  Weight: 61.2356 kg

DRUGS (2)
  1. ESTRATEST H.S. [Suspect]
     Indication: HYSTEROSALPINGO-OOPHORECTOMY
     Dosage: 1 DAILY PO
     Route: 048
     Dates: start: 20080204, end: 20080315
  2. EST ESTRGN METHTEST 0.625/1.25 MG AMNEAL [Suspect]
     Indication: OSTEOPOROSIS
     Dates: start: 20080316, end: 20081227

REACTIONS (3)
  - ARTHRALGIA [None]
  - FATIGUE [None]
  - MALAISE [None]
